FAERS Safety Report 7299962-7 (Version None)
Quarter: 2011Q1

REPORT INFORMATION
  Report Type: 
  Country: None (occurrence: None)
  Receive Date: 20110217
  Receipt Date: 20110208
  Transmission Date: 20110831
  Serious: Yes (Other)
  Sender: FDA-Public Use
  Company Number: US-BAXTER-2011BH003794

PATIENT

DRUGS (4)
  1. ATROPINE SULFATE [Suspect]
     Indication: ENDOTRACHEAL INTUBATION
     Route: 042
  2. FENTANYL CITRATE [Suspect]
     Indication: ENDOTRACHEAL INTUBATION
     Route: 042
  3. NORMAL SALINE [Concomitant]
     Indication: INTRAVENOUS CATHETER MANAGEMENT
     Route: 042
  4. ROCURONIUM BROMIDE [Suspect]
     Indication: ENDOTRACHEAL INTUBATION
     Route: 042

REACTIONS (1)
  - TACHYCARDIA [None]
